FAERS Safety Report 13370154 (Version 1)
Quarter: 2017Q1

REPORT INFORMATION
  Report Type: Report from Study
  Country: US (occurrence: US)
  Receive Date: 20170324
  Receipt Date: 20170324
  Transmission Date: 20170429
  Serious: Yes (Other)
  Sender: FDA-Public Use
  Company Number: US-JAZZ-2017-US-003064

PATIENT
  Sex: Male

DRUGS (32)
  1. DEPLIN [Concomitant]
     Active Substance: LEVOMEFOLATE CALCIUM
  2. VITAMIN D3 [Concomitant]
     Active Substance: CHOLECALCIFEROL
  3. TESTOSTERONE. [Concomitant]
     Active Substance: TESTOSTERONE
  4. PRISTIQ EXTENDED-RELEASE [Concomitant]
     Active Substance: DESVENLAFAXINE SUCCINATE
  5. XYREM [Suspect]
     Active Substance: SODIUM OXYBATE
     Indication: CATAPLEXY
     Dosage: 3.75 G, BID
     Route: 048
     Dates: start: 201308, end: 201309
  6. KLONOPIN [Suspect]
     Active Substance: CLONAZEPAM
     Indication: MOVEMENT DISORDER
  7. MELATONIN [Concomitant]
     Active Substance: MELATONIN
  8. OMEGA-3                            /01866101/ [Concomitant]
     Active Substance: OMEGA-3 FATTY ACIDS
  9. LEVEMIR [Concomitant]
     Active Substance: INSULIN DETEMIR
  10. HYDROCODONE-IBUPROFEN [Concomitant]
     Active Substance: HYDROCODONE BITARTRATE\IBUPROFEN
  11. TYLENOL [Concomitant]
     Active Substance: ACETAMINOPHEN
  12. TYLENOL ARTHRITIS PAIN [Concomitant]
     Active Substance: ACETAMINOPHEN
  13. OLANZAPINE. [Concomitant]
     Active Substance: OLANZAPINE
  14. ROPINIROLE HCL [Concomitant]
     Active Substance: ROPINIROLE HYDROCHLORIDE
  15. BYDUREON [Concomitant]
     Active Substance: EXENATIDE
  16. VITAMIN C [Concomitant]
     Active Substance: ASCORBIC ACID
  17. ZETIA [Concomitant]
     Active Substance: EZETIMIBE
  18. XYREM [Suspect]
     Active Substance: SODIUM OXYBATE
     Indication: NARCOLEPSY
     Dosage: 3 G, BID
     Route: 048
     Dates: start: 201308, end: 201308
  19. TOUJEO [Concomitant]
     Active Substance: INSULIN GLARGINE
  20. SERTRALINE HCL [Concomitant]
     Active Substance: SERTRALINE HYDROCHLORIDE
  21. FLUTICASONE PROPIONATE. [Concomitant]
     Active Substance: FLUTICASONE PROPIONATE
  22. VYTORIN [Concomitant]
     Active Substance: EZETIMIBE\SIMVASTATIN
  23. LUTEIN                             /01638501/ [Concomitant]
     Active Substance: LUTEIN
  24. SIMVASTATIN. [Concomitant]
     Active Substance: SIMVASTATIN
  25. NUVIGIL [Concomitant]
     Active Substance: ARMODAFINIL
  26. ACTOS [Concomitant]
     Active Substance: PIOGLITAZONE HYDROCHLORIDE
  27. COENZYME Q10 [Concomitant]
     Active Substance: UBIDECARENONE
  28. CYANOCOBALAMIN. [Concomitant]
     Active Substance: CYANOCOBALAMIN
  29. XYREM [Suspect]
     Active Substance: SODIUM OXYBATE
     Dosage: 4.5 G, BID
     Route: 048
     Dates: start: 201309
  30. VISTARIL                           /00058402/ [Concomitant]
     Active Substance: HYDROXYZINE HYDROCHLORIDE
  31. BUSPIRONE HCL [Concomitant]
     Active Substance: BUSPIRONE HYDROCHLORIDE
  32. VITAMIN B-6 [Concomitant]
     Active Substance: PYRIDOXINE

REACTIONS (6)
  - Epilepsy [Not Recovered/Not Resolved]
  - Movement disorder [Recovering/Resolving]
  - Dizziness [Not Recovered/Not Resolved]
  - Condition aggravated [Recovering/Resolving]
  - Fall [Recovered/Resolved]
  - Memory impairment [Not Recovered/Not Resolved]
